FAERS Safety Report 14566736 (Version 6)
Quarter: 2018Q2

REPORT INFORMATION
  Report Type: Report from Study
  Country: BR (occurrence: BR)
  Receive Date: 20180223
  Receipt Date: 20180402
  Transmission Date: 20180711
  Serious: Yes (Other)
  Sender: FDA-Public Use
  Company Number: PHHY2018BR026768

PATIENT
  Age: 69 Year
  Sex: Female
  Weight: 47.6 kg

DRUGS (6)
  1. SYSTANE (HYPROMELLOSE 2910 (4000 MPA.S)) [Suspect]
     Active Substance: HYPROMELLOSE 2910 (4000 MPA.S)
     Indication: DRY EYE
     Dosage: 1 DRP, Q6H
     Route: 047
  2. SYSTANE (HYPROMELLOSE 2910 (4000 MPA.S)) [Suspect]
     Active Substance: HYPROMELLOSE 2910 (4000 MPA.S)
     Indication: CONJUNCTIVAL HAEMORRHAGE
  3. SYSTANE (HYPROMELLOSE 2910 (4000 MPA.S)) [Suspect]
     Active Substance: HYPROMELLOSE 2910 (4000 MPA.S)
     Indication: EYE HAEMORRHAGE
  4. HYABAK [Concomitant]
     Active Substance: HYALURONATE SODIUM
     Indication: EYE LUBRICATION THERAPY
     Dosage: 1 DRP (1.5%/10ML), Q6H
     Route: 047
  5. AZORGA [Suspect]
     Active Substance: BRINZOLAMIDE\TIMOLOL MALEATE
     Indication: INTRAOCULAR PRESSURE INCREASED
     Dosage: 1 DRP, Q12H (EACH EYE)
     Route: 047
  6. LUMIGAN [Concomitant]
     Active Substance: BIMATOPROST
     Indication: GLAUCOMA
     Dosage: 1 DRP, QHS (BEFORE BED)
     Route: 047

REACTIONS (11)
  - Eyelid margin crusting [Recovering/Resolving]
  - Eye haemorrhage [Recovering/Resolving]
  - Cataract operation complication [Recovered/Resolved with Sequelae]
  - Growth of eyelashes [Recovered/Resolved]
  - Atrophy of globe [Not Recovered/Not Resolved]
  - Cerebrovascular accident [Unknown]
  - Eyelid ptosis [Recovered/Resolved]
  - Blindness unilateral [Not Recovered/Not Resolved]
  - Condition aggravated [Recovering/Resolving]
  - Visual impairment [Not Recovered/Not Resolved]
  - Dry eye [Recovering/Resolving]

NARRATIVE: CASE EVENT DATE: 201708
